FAERS Safety Report 13297732 (Version 2)
Quarter: 2017Q2

REPORT INFORMATION
  Report Type: Spontaneous
  Country: US (occurrence: US)
  Receive Date: 20170306
  Receipt Date: 20170509
  Transmission Date: 20170830
  Serious: No
  Sender: FDA-Public Use
  Company Number: US-PFIZER INC-2017091682

PATIENT
  Age: 83 Year
  Sex: Male
  Weight: 75 kg

DRUGS (4)
  1. PRIMIDONE. [Concomitant]
     Active Substance: PRIMIDONE
     Indication: LOSS OF CONSCIOUSNESS
     Dosage: 250 MG, 1X/DAY
  2. TYLENOL PM [Suspect]
     Active Substance: ACETAMINOPHEN\DIPHENHYDRAMINE
     Indication: PAIN
     Dosage: 1 DF, 1X/DAY, AT NIGHT
     Dates: start: 201702
  3. LISINOPRIL. [Concomitant]
     Active Substance: LISINOPRIL
     Indication: HYPERTENSION
     Dosage: 10 MG, 1X/DAY
  4. ADVIL [Suspect]
     Active Substance: IBUPROFEN
     Dosage: 200 MG, DAILY
     Dates: start: 201702

REACTIONS (4)
  - Hypoaesthesia [Recovering/Resolving]
  - Erythema [Recovering/Resolving]
  - Joint swelling [Not Recovered/Not Resolved]
  - Peripheral swelling [Not Recovered/Not Resolved]

NARRATIVE: CASE EVENT DATE: 20170227
